FAERS Safety Report 8432982-5 (Version None)
Quarter: 2012Q2

REPORT INFORMATION
  Report Type: 
  Country: None (occurrence: None)
  Receive Date: 20120613
  Receipt Date: 20120607
  Transmission Date: 20120825
  Serious: Yes (Other)
  Sender: FDA-Public Use
  Company Number: RU-ROCHE-1074571

PATIENT
  Age: 35 Year
  Sex: Male

DRUGS (13)
  1. FUZEON [Suspect]
     Indication: HIV INFECTION
     Route: 058
     Dates: start: 20120524
  2. DEXAMETHASONE [Concomitant]
     Route: 042
     Dates: start: 20120606
  3. ISONIAZID [Concomitant]
     Route: 042
  4. MEROPENEM [Concomitant]
  5. VITAMIN B6 [Concomitant]
     Route: 042
  6. AVELOX [Concomitant]
     Route: 042
  7. RIFABUTIN [Concomitant]
  8. PANANGIN [Suspect]
     Indication: PRODUCT USED FOR UNKNOWN INDICATION
     Route: 042
  9. EPIVIR [Concomitant]
  10. DEXAMETHASONE [Concomitant]
     Route: 042
     Dates: start: 20120601, end: 20120606
  11. CAPREOMYCIN [Concomitant]
     Route: 030
  12. KALETRA [Concomitant]
     Indication: HIV INFECTION
  13. PYRAZINAMIDE [Concomitant]
     Route: 048

REACTIONS (3)
  - IRRITABILITY [None]
  - DISORIENTATION [None]
  - ARTHRALGIA [None]
